FAERS Safety Report 4563756-3 (Version None)
Quarter: 2005Q1

REPORT INFORMATION
  Report Type: 
  Country: None (occurrence: None)
  Receive Date: 20050121
  Receipt Date: 20050105
  Transmission Date: 20050727
  Serious: Yes (Hospitalization)
  Sender: FDA-Public Use
  Company Number: USA040567828

PATIENT
  Age: 80 Year
  Sex: Female
  Weight: 68 kg

DRUGS (12)
  1. FORTEO [Suspect]
     Indication: OSTEOPOROSIS
     Dosage: 20 UG DAY
     Dates: start: 20040505
  2. CODEINE [Concomitant]
  3. TYLENOL [Concomitant]
  4. AMBIEN [Concomitant]
  5. HYDROCODONE [Concomitant]
  6. ASPIRIN [Concomitant]
  7. COZAAR [Concomitant]
  8. METOPROLOL [Concomitant]
  9. TRIAMTERENE AND HYDROCHLOROTHIAZIDE [Concomitant]
  10. ACIPHEX [Concomitant]
  11. CLARITIN [Concomitant]
  12. VICODIN [Concomitant]

REACTIONS (22)
  - ABDOMINAL DISCOMFORT [None]
  - ANOREXIA [None]
  - ASTHENIA [None]
  - BODY HEIGHT DECREASED [None]
  - CONSTIPATION [None]
  - DEPRESSION [None]
  - DYSPNOEA EXERTIONAL [None]
  - EARLY SATIETY [None]
  - FALL [None]
  - FATIGUE [None]
  - FEAR [None]
  - FEELING ABNORMAL [None]
  - GRAVITATIONAL OEDEMA [None]
  - HYPERCALCAEMIA [None]
  - KYPHOSIS [None]
  - NAUSEA [None]
  - OEDEMA PERIPHERAL [None]
  - PHARMACEUTICAL PRODUCT COMPLAINT [None]
  - SLEEP DISORDER [None]
  - SPINAL COMPRESSION FRACTURE [None]
  - VITAMIN D DECREASED [None]
  - WEIGHT DECREASED [None]
